FAERS Safety Report 22345100 (Version 1)
Quarter: 2023Q2

REPORT INFORMATION
  Report Type: Spontaneous
  Country: US (occurrence: US)
  Receive Date: 20230519
  Receipt Date: 20230519
  Transmission Date: 20230721
  Serious: Yes (Other)
  Sender: FDA-Public Use
  Company Number: US-PFIZER INC-PV202300086834

PATIENT
  Age: 48 Year
  Sex: Male

DRUGS (1)
  1. CIBINQO [Suspect]
     Active Substance: ABROCITINIB
     Indication: Dermatitis atopic
     Dosage: 200 MG, 1X/DAY, (QD)

REACTIONS (6)
  - Haemorrhage [Unknown]
  - Therapeutic product effect incomplete [Unknown]
  - Scab [Unknown]
  - Rash [Unknown]
  - Dermatitis atopic [Unknown]
  - Condition aggravated [Unknown]
